FAERS Safety Report 4986413-8 (Version None)
Quarter: 2006Q2

REPORT INFORMATION
  Report Type: 
  Country: None (occurrence: None)
  Receive Date: 20060428
  Receipt Date: 20051215
  Transmission Date: 20061013
  Serious: Yes (Disabling, Other)
  Sender: FDA-Public Use
  Company Number: US-MERCK-0512USA02579

PATIENT
  Age: 40 Year
  Sex: Female
  Weight: 80 kg

DRUGS (7)
  1. VIOXX [Suspect]
     Indication: RHEUMATOID ARTHRITIS
     Route: 048
     Dates: start: 19990601, end: 20040930
  2. VIOXX [Suspect]
     Route: 048
     Dates: start: 19990601, end: 20040930
  3. PREDNISONE [Concomitant]
     Indication: PAIN
     Route: 065
     Dates: start: 20020302, end: 20040112
  4. IBUPROFEN [Concomitant]
     Route: 065
     Dates: start: 20000626
  5. ALBUTEROL [Concomitant]
     Route: 065
  6. CYPROHEPTADINE HYDROCHLORIDE [Concomitant]
     Route: 065
  7. BIAXIN [Concomitant]
     Route: 065

REACTIONS (8)
  - BRONCHITIS [None]
  - GASTRITIS [None]
  - HORMONE LEVEL ABNORMAL [None]
  - MYOCARDIAL INFARCTION [None]
  - OEDEMA PERIPHERAL [None]
  - PULMONARY EMBOLISM [None]
  - SARCOIDOSIS [None]
  - THROMBOSIS [None]
